FAERS Safety Report 10460159 (Version 1)
Quarter: 2014Q3

REPORT INFORMATION
  Report Type: Spontaneous
  Country: DE (occurrence: DE)
  Receive Date: 20140917
  Receipt Date: 20140917
  Transmission Date: 20150326
  Serious: Yes (Other)
  Sender: FDA-Public Use
  Company Number: DE-PFIZER INC-2014254181

PATIENT
  Age: 38 Year
  Sex: Female
  Weight: 46 kg

DRUGS (6)
  1. VENLAFAXINE HCL [Suspect]
     Active Substance: VENLAFAXINE HYDROCHLORIDE
     Indication: EATING DISORDER
     Dosage: 75 MG, 2X/DAY 0. - 33.6. GESTATIONAL WEEK
     Route: 048
     Dates: start: 20130127, end: 20130921
  2. AMITRIPTYLIN-NEURAXPHARM 100 [Suspect]
     Active Substance: AMITRIPTYLINE
     Indication: DEPRESSION
     Dosage: 100 MG, 1X/DAY 0. - 28.4. GESTATIONAL WEEK
     Route: 048
  3. AMITRIPTYLIN DURA 75 RET. [Suspect]
     Active Substance: AMITRIPTYLINE
     Indication: DEPRESSION
     Dosage: 75 MG, 1X/DAY 0. - 33.6. GESTATIONAL WEEK
     Route: 048
     Dates: start: 20130127, end: 20130921
  4. VENLAFAXIN DURA 75 RET. [Suspect]
     Active Substance: VENLAFAXINE HYDROCHLORIDE
     Indication: EATING DISORDER
     Dosage: 75 MG, 1X/DAY 0. - 33.6. GESTATIONAL WEEK
     Route: 048
     Dates: start: 20130127, end: 20130921
  5. ZELDOX [Suspect]
     Active Substance: ZIPRASIDONE
     Indication: SCHIZOPHRENIA
     Dosage: 60 MG, 1X/DAY 0. - 33.6. GESTATIONAL WEEK
     Route: 048
     Dates: start: 20130127, end: 20130921
  6. DOXEPIN [Suspect]
     Active Substance: DOXEPIN
     Indication: ANXIETY DISORDER
     Dosage: 50 MG, 1X/DAY TRIMESTER: LONG TERM EXPOSURE
     Route: 048
     Dates: end: 201308

REACTIONS (4)
  - Foetal monitoring abnormal [Recovered/Resolved]
  - Cervical incompetence [Unknown]
  - Premature labour [Unknown]
  - Off label use [Unknown]
